FAERS Safety Report 4576625-X (Version None)
Quarter: 2005Q1

REPORT INFORMATION
  Report Type: 
  Country: None (occurrence: None)
  Receive Date: 20050210
  Receipt Date: 20050128
  Transmission Date: 20050727
  Serious: Yes (Other)
  Sender: FDA-Public Use
  Company Number: US-JNJFOC-20041105211

PATIENT
  Sex: Female
  Weight: 80.29 kg

DRUGS (15)
  1. REMICADE [Suspect]
     Indication: RHEUMATOID ARTHRITIS
     Dosage: OFFICIALLY DISCONTINUED ON 18-JUN-2004 BEFORE NEXT DOSE
     Route: 042
  2. GOLD [Concomitant]
     Route: 030
  3. PLAQUENIL [Concomitant]
  4. PREDNISONE [Concomitant]
     Dates: start: 19970201
  5. METHOTREXATE [Concomitant]
  6. INSULIN [Concomitant]
     Dosage: 32 UNITS
  7. SYNTHROID [Concomitant]
  8. TUMS ULTRA [Concomitant]
  9. PRAVACHOL [Concomitant]
  10. TYLENOL [Concomitant]
  11. FOLIC ACID [Concomitant]
  12. LASIX [Concomitant]
  13. LASIX [Concomitant]
  14. VITAMIN D [Concomitant]
  15. PRILOSEC [Concomitant]

REACTIONS (6)
  - CARDIAC FAILURE CONGESTIVE [None]
  - CARDIOMYOPATHY [None]
  - MITRAL VALVE INCOMPETENCE [None]
  - PLEURAL EFFUSION [None]
  - TRICUSPID VALVE INCOMPETENCE [None]
  - VENTRICULAR DYSFUNCTION [None]
